FAERS Safety Report 14564454 (Version 3)
Quarter: 2018Q1

REPORT INFORMATION
  Report Type: Spontaneous
  Country: US (occurrence: US)
  Receive Date: 20180222
  Receipt Date: 20180315
  Transmission Date: 20180509
  Serious: Yes (Other)
  Sender: FDA-Public Use
  Company Number: US-ALLERGAN-1809711US

PATIENT
  Age: 41 Year
  Sex: Female
  Weight: 53.79 kg

DRUGS (1)
  1. NORCO [Suspect]
     Active Substance: ACETAMINOPHEN\HYDROCODONE BITARTRATE
     Indication: FIBROMYALGIA
     Dosage: 5 MG, UNK
     Route: 048

REACTIONS (2)
  - Haematemesis [Unknown]
  - Drug hypersensitivity [Not Recovered/Not Resolved]
